FAERS Safety Report 5450116-6 (Version None)
Quarter: 2007Q3

REPORT INFORMATION
  Report Type: 
  Country: None (occurrence: None)
  Receive Date: 20070912
  Receipt Date: 20070906
  Transmission Date: 20080115
  Serious: Yes (Life-Threatening, Hospitalization)
  Sender: FDA-Public Use
  Company Number: A0669552A

PATIENT
  Age: 50 Year
  Sex: Male
  Weight: 95.3 kg

DRUGS (3)
  1. PAZOPANIB [Suspect]
     Indication: MALIGNANT GLIOMA
     Dosage: 400MG PER DAY
     Route: 048
     Dates: start: 20070614
  2. LAPATINIB [Suspect]
     Indication: MALIGNANT GLIOMA
     Dosage: 250MG PER DAY
     Route: 048
     Dates: start: 20070614
  3. LOVENOX [Concomitant]
     Indication: DEEP VEIN THROMBOSIS
     Dates: start: 20061130

REACTIONS (4)
  - CHEST PAIN [None]
  - DEEP VEIN THROMBOSIS [None]
  - DYSPNOEA EXERTIONAL [None]
  - PULMONARY EMBOLISM [None]
